FAERS Safety Report 6578559-8 (Version None)
Quarter: 2010Q1

REPORT INFORMATION
  Report Type: 
  Country: None (occurrence: None)
  Receive Date: 20100211
  Receipt Date: 20091230
  Transmission Date: 20100710
  Serious: No
  Sender: FDA-Public Use
  Company Number: US-B.I. PHARMACEUTICALS,INC./RIDGEFIELD-2010-BP-01652BP

PATIENT
  Sex: Female

DRUGS (5)
  1. ZANTAC 150 [Suspect]
     Indication: DYSPEPSIA
     Dosage: 300 MG
     Route: 048
     Dates: start: 20090815, end: 20090829
  2. ZANTAC 150 [Suspect]
     Dosage: 150 MG
     Route: 048
     Dates: start: 20090721, end: 20090814
  3. PLAVIX [Concomitant]
     Indication: CEREBROVASCULAR ACCIDENT
  4. PROPRANOLOL [Concomitant]
     Indication: MITRAL VALVE PROLAPSE
  5. PROPRANOLOL [Concomitant]
     Indication: VENTRICULAR EXTRASYSTOLES

REACTIONS (3)
  - ABDOMINAL PAIN UPPER [None]
  - PRURITUS [None]
  - VENTRICULAR EXTRASYSTOLES [None]
